FAERS Safety Report 9931278 (Version 2)
Quarter: 2015Q1

REPORT INFORMATION
  Report Type: Report from Study
  Country: US (occurrence: US)
  Receive Date: 20140228
  Receipt Date: 20150106
  Transmission Date: 20150721
  Serious: Yes (Death)
  Sender: FDA-Public Use
  Company Number: US-ROCHE-1334178

PATIENT
  Age: 62 Year
  Sex: Female

DRUGS (52)
  1. AVASTIN [Suspect]
     Active Substance: BEVACIZUMAB
     Route: 042
     Dates: start: 20110622
  2. LORAZEPAM. [Concomitant]
     Active Substance: LORAZEPAM
     Route: 042
  3. LEVAQUIN [Concomitant]
     Active Substance: LEVOFLOXACIN
     Route: 065
  4. NORVASC [Concomitant]
     Active Substance: AMLODIPINE BESYLATE
  5. AVASTIN [Suspect]
     Active Substance: BEVACIZUMAB
     Indication: PANCREATIC CARCINOMA
     Route: 042
     Dates: start: 20110525
  6. AVASTIN [Suspect]
     Active Substance: BEVACIZUMAB
     Route: 042
     Dates: start: 20111115
  7. ZANTAC [Concomitant]
     Active Substance: RANITIDINE HYDROCHLORIDE
     Route: 065
  8. TPN [Concomitant]
     Active Substance: AMINO ACIDS\DEXTROSE\ELECTROLYTES NOS\SOYBEAN OIL
  9. AVASTIN [Suspect]
     Active Substance: BEVACIZUMAB
     Route: 042
     Dates: start: 20110907
  10. AVASTIN [Suspect]
     Active Substance: BEVACIZUMAB
     Route: 042
     Dates: start: 20120224
  11. ABRAXANE [Concomitant]
     Active Substance: PACLITAXEL
     Route: 042
  12. 5-FU [Concomitant]
     Active Substance: FLUOROURACIL
     Route: 042
     Dates: start: 20110525
  13. ZOFRAN [Concomitant]
     Active Substance: ONDANSETRON HYDROCHLORIDE
     Route: 065
  14. LIPITOR [Concomitant]
     Active Substance: ATORVASTATIN CALCIUM
  15. SINGULAIR [Concomitant]
     Active Substance: MONTELUKAST SODIUM
  16. FORADIL [Concomitant]
     Active Substance: FORMOTEROL FUMARATE
  17. OXYCODONE [Concomitant]
     Active Substance: OXYCODONE
     Route: 065
  18. EPIRUBICIN [Concomitant]
     Active Substance: EPIRUBICIN
     Route: 042
     Dates: start: 20120110
  19. NYSTATIN. [Concomitant]
     Active Substance: NYSTATIN
  20. VANCOMYCIN [Concomitant]
     Active Substance: VANCOMYCIN
  21. ACTIQ [Concomitant]
     Active Substance: FENTANYL CITRATE
     Dosage: 4/D
     Route: 065
  22. ATIVAN [Concomitant]
     Active Substance: LORAZEPAM
     Route: 065
  23. XELODA [Suspect]
     Active Substance: CAPECITABINE
     Indication: PANCREATIC CARCINOMA
     Route: 065
  24. KYTRIL [Suspect]
     Active Substance: GRANISETRON HYDROCHLORIDE
     Indication: PRODUCT USED FOR UNKNOWN INDICATION
     Route: 065
  25. EPIRUBICIN [Concomitant]
     Active Substance: EPIRUBICIN
     Route: 042
     Dates: start: 20111025
  26. MITOMYCIN. [Concomitant]
     Active Substance: MITOMYCIN
     Route: 042
  27. DEXAMETHASONE. [Concomitant]
     Active Substance: DEXAMETHASONE
     Route: 042
  28. PROCRIT [Concomitant]
     Active Substance: ERYTHROPOIETIN
     Dosage: 40,000 UNITS
     Route: 058
  29. DIOVAN [Concomitant]
     Active Substance: VALSARTAN
  30. TINCTURE OF OPIUM [Concomitant]
     Active Substance: OPIUM
  31. MEGACE [Concomitant]
     Active Substance: MEGESTROL ACETATE
  32. AVASTIN [Suspect]
     Active Substance: BEVACIZUMAB
     Route: 042
     Dates: start: 20110720
  33. AVASTIN [Suspect]
     Active Substance: BEVACIZUMAB
     Route: 042
     Dates: start: 20120110
  34. AVASTIN [Suspect]
     Active Substance: BEVACIZUMAB
     Route: 042
     Dates: start: 20100521
  35. ELOXATIN [Concomitant]
     Active Substance: OXALIPLATIN
     Route: 042
  36. ELOXATIN [Concomitant]
     Active Substance: OXALIPLATIN
     Route: 042
     Dates: start: 20110907
  37. 5-FU [Concomitant]
     Active Substance: FLUOROURACIL
     Route: 042
     Dates: start: 20110706
  38. LEUCOVORIN [Concomitant]
     Active Substance: LEUCOVORIN
     Route: 042
  39. EPIRUBICIN [Concomitant]
     Active Substance: EPIRUBICIN
     Route: 042
     Dates: start: 20111115
  40. ALOXI [Concomitant]
     Active Substance: PALONOSETRON HYDROCHLORIDE
     Route: 042
  41. MITOMYCIN. [Concomitant]
     Active Substance: MITOMYCIN
     Route: 042
     Dates: start: 20120110
  42. PREDNISONE. [Concomitant]
     Active Substance: PREDNISONE
     Route: 065
  43. CALCIUM GLUCONATE. [Concomitant]
     Active Substance: CALCIUM GLUCONATE
  44. METFORMIN [Concomitant]
     Active Substance: METFORMIN HYDROCHLORIDE
  45. AVASTIN [Suspect]
     Active Substance: BEVACIZUMAB
     Route: 042
     Dates: start: 20110706
  46. AVASTIN [Suspect]
     Active Substance: BEVACIZUMAB
     Route: 042
     Dates: start: 20111025
  47. FENTANYL TRANSDERMAL SYSTEM [Concomitant]
     Active Substance: FENTANYL
     Route: 065
  48. MAGNESIUM SULFATE. [Concomitant]
     Active Substance: MAGNESIUM SULFATE
  49. PROTONIX (UNITED STATES) [Concomitant]
  50. CADUET [Concomitant]
     Active Substance: AMLODIPINE BESYLATE\ATORVASTATIN CALCIUM
  51. AVASTIN [Suspect]
     Active Substance: BEVACIZUMAB
     Indication: SMALL INTESTINE CARCINOMA
     Route: 042
     Dates: start: 20110504
  52. ALAMAST [Concomitant]
     Active Substance: PEMIROLAST POTASSIUM

REACTIONS (32)
  - Death [Fatal]
  - Decubitus ulcer [Unknown]
  - Anuria [Unknown]
  - Stomatitis [Unknown]
  - Hypertension [Unknown]
  - Upper-airway cough syndrome [Unknown]
  - Ulcer [Unknown]
  - Pruritus [Unknown]
  - Nausea [Unknown]
  - Dyspnoea exertional [Unknown]
  - Bronchitis [Unknown]
  - Hypersplenism [Unknown]
  - Staphylococcal infection [Unknown]
  - Anaemia [Unknown]
  - Diarrhoea [Unknown]
  - Chest pain [Unknown]
  - Decreased appetite [Unknown]
  - Oedema [Unknown]
  - Cachexia [Unknown]
  - Steatorrhoea [Unknown]
  - Dysphonia [Unknown]
  - Disease progression [Unknown]
  - Pain [Unknown]
  - Neuropathy peripheral [Unknown]
  - Constipation [Unknown]
  - Vomiting [Unknown]
  - Paraesthesia [Unknown]
  - Stomatitis [Unknown]
  - Hypoaesthesia [Unknown]
  - Asthenia [Unknown]
  - Ligament sprain [Unknown]
  - Off label use [Unknown]

NARRATIVE: CASE EVENT DATE: 20110720
